FAERS Safety Report 4705757-8 (Version None)
Quarter: 2005Q2

REPORT INFORMATION
  Report Type: 
  Country: None (occurrence: None)
  Receive Date: 20050629
  Receipt Date: 20050620
  Transmission Date: 20051028
  Serious: Yes (Other)
  Sender: FDA-Public Use
  Company Number: CA-2005-008685

PATIENT
  Age: 26 Year
  Sex: Female

DRUGS (2)
  1. MIRENA [Suspect]
     Dosage: 20 UG/DAY,CONT, INTR-UTERINE
     Route: 015
     Dates: start: 20050401
  2. ANTIHYPERTENSIVES [Concomitant]

REACTIONS (2)
  - DYSMENORRHOEA [None]
  - HYPERTENSIVE CRISIS [None]
